FAERS Safety Report 9819375 (Version 1)
Quarter: 2013Q4

REPORT INFORMATION
  Report Type: Spontaneous
  Country: US (occurrence: None)
  Receive Date: 20131223
  Receipt Date: 20131223
  Transmission Date: 20140711
  Serious: Yes (Other)
  Sender: FDA-Public Use
  Company Number: 221053

PATIENT
  Age: 54 Year
  Sex: Female

DRUGS (4)
  1. PICATO GEL [Suspect]
     Indication: ACTINIC KERATOSIS
     Dosage: (1 IN 1 D),DERMAL TO BOTH LEGS
     Dates: start: 20130321, end: 20130321
  2. FLUOROURACIL [Suspect]
     Indication: PRECANCEROUS SKIN LESION
  3. PROZAC(FLUOXETINE) [Concomitant]
  4. XANAX(ALPRRAZOLAM) [Concomitant]

REACTIONS (5)
  - Periorbital oedema [None]
  - Erythema [None]
  - Face oedema [None]
  - Feeling hot [None]
  - Drug administered at inappropriate site [None]
